FAERS Safety Report 9936869 (Version 1)
Quarter: 2014Q1

REPORT INFORMATION
  Report Type: Spontaneous
  Country: US (occurrence: None)
  Receive Date: 20140115
  Receipt Date: 20140115
  Transmission Date: 20141002
  Serious: Yes (Other)
  Sender: FDA-Public Use
  Company Number: DAV-AE-MTX-13-29

PATIENT
  Age: 68 Year
  Sex: Female

DRUGS (7)
  1. METHOTREXATE 2.5MG? [Suspect]
     Indication: ARTHRITIS
     Dosage: 7.5MG (3 TABS/1X/WK), ORAL
     Route: 048
     Dates: start: 201301, end: 20130404
  2. FOLIC ACID 1MG QD [Concomitant]
  3. THEOPHYLLINE [Concomitant]
  4. PREDNISONE [Concomitant]
  5. AMLODIPINE [Concomitant]
  6. PRAVASTATIN [Concomitant]
  7. ATENOLOL [Concomitant]

REACTIONS (1)
  - Chest pain [None]
